FAERS Safety Report 6080793-0 (Version None)
Quarter: 2009Q1

REPORT INFORMATION
  Report Type: 
  Country: None (occurrence: None)
  Receive Date: 20090217
  Receipt Date: 20090202
  Transmission Date: 20090719
  Serious: Yes (Hospitalization)
  Sender: FDA-Public Use
  Company Number: DE-GENENTECH-277040

PATIENT
  Sex: Female

DRUGS (5)
  1. RITUXIMAB [Suspect]
     Indication: NON-HODGKIN'S LYMPHOMA
     Dosage: 375 MG/M2, UNK
     Route: 042
     Dates: start: 20081119
  2. METOCLOPRAMIDE [Concomitant]
     Indication: DRUG USE FOR UNKNOWN INDICATION
     Dosage: UNK
     Dates: start: 20090115
  3. BUSCOPAN [Concomitant]
     Indication: DRUG USE FOR UNKNOWN INDICATION
     Dosage: UNK
     Dates: start: 20090115
  4. ZOFRAN [Concomitant]
     Indication: DRUG USE FOR UNKNOWN INDICATION
     Dosage: UNK
     Dates: start: 20090130
  5. FORTECORTIN [Concomitant]
     Indication: DRUG USE FOR UNKNOWN INDICATION
     Dosage: UNK
     Dates: start: 20090130

REACTIONS (2)
  - MUCOSAL INFLAMMATION [None]
  - STOMATITIS [None]
